FAERS Safety Report 20823143 (Version 1)
Quarter: 2022Q2

REPORT INFORMATION
  Report Type: Spontaneous
  Country: US (occurrence: US)
  Receive Date: 20220513
  Receipt Date: 20220513
  Transmission Date: 20220721
  Serious: Yes (Death, Hospitalization, Other)
  Sender: FDA-Public Use
  Company Number: US-009507513-2205USA001851

PATIENT
  Age: 69 Year
  Sex: Male

DRUGS (2)
  1. KEYTRUDA [Suspect]
     Active Substance: PEMBROLIZUMAB
     Indication: Hepatic cancer
     Dosage: UNKNOWN BY REPORTER/ EVERY 3 WEEKS
     Dates: start: 202101, end: 202101
  2. KEYTRUDA [Suspect]
     Active Substance: PEMBROLIZUMAB
     Dosage: EVERY 3 WEEKS
     Dates: start: 202103

REACTIONS (13)
  - Death [Fatal]
  - Cerebrovascular accident [Recovered/Resolved]
  - Hemiplegia [Unknown]
  - Transfusion [Unknown]
  - Malignant neoplasm progression [Unknown]
  - Pain [Unknown]
  - Dyspnoea [Unknown]
  - Heart rate irregular [Unknown]
  - Extrasystoles [Unknown]
  - Gait inability [Unknown]
  - Drug ineffective [Unknown]
  - Lung disorder [Unknown]
  - Hospice care [Unknown]

NARRATIVE: CASE EVENT DATE: 20210101
